FAERS Safety Report 8095525-4 (Version None)
Quarter: 2011Q4

REPORT INFORMATION
  Report Type: 
  Country: None (occurrence: None)
  Receive Date: 20111222
  Receipt Date: 20110929
  Transmission Date: 20120403
  Serious: Yes (Hospitalization)
  Sender: FDA-Public Use
  Company Number: UTC-010730

PATIENT
  Age: 34 Year
  Sex: Female
  Weight: 61.35 kg

DRUGS (2)
  1. REVATIO [Concomitant]
  2. TYVASO [Suspect]
     Indication: COR PULMONALE CHRONIC
     Dosage: 18-54 MICROGRAMS (4 IN 1 D) INHALATION
     Route: 055
     Dates: start: 20100306

REACTIONS (2)
  - ABDOMINAL DISCOMFORT [None]
  - SURGERY [None]
